FAERS Safety Report 9400472 (Version 1)
Quarter: 2013Q3

REPORT INFORMATION
  Report Type: Spontaneous
  Country: SE (occurrence: SE)
  Receive Date: 20130715
  Receipt Date: 20130715
  Transmission Date: 20140515
  Serious: Yes (Hospitalization)
  Sender: FDA-Public Use
  Company Number: SE-TEVA-416257ISR

PATIENT
  Age: 55 Year
  Sex: Female

DRUGS (3)
  1. LOSARTAN/HYDROCHLORTIAZIDE TEVA [Suspect]
     Indication: ESSENTIAL HYPERTENSION
     Route: 048
     Dates: start: 20130214, end: 20130424
  2. METOPROLOL RATIOPHARM [Concomitant]
     Route: 048
  3. ATORBIR [Concomitant]
     Route: 048

REACTIONS (8)
  - Toxic skin eruption [Recovered/Resolved]
  - Decreased appetite [Recovered/Resolved]
  - Pain [Recovered/Resolved]
  - Palpitations [Recovered/Resolved]
  - Paraesthesia [Recovered/Resolved]
  - Tremor [Recovered/Resolved]
  - Anxiety [Recovered/Resolved]
  - Depression [Recovered/Resolved]
